FAERS Safety Report 10255713 (Version 1)
Quarter: 2014Q2

REPORT INFORMATION
  Report Type: Spontaneous
  Country: CA (occurrence: CA)
  Receive Date: 20140624
  Receipt Date: 20140624
  Transmission Date: 20141212
  Serious: Yes (Hospitalization, Other)
  Sender: FDA-Public Use
  Company Number: PHHY2014CA076859

PATIENT
  Age: 90 Year
  Sex: Male
  Weight: 58.96 kg

DRUGS (9)
  1. FIORINAL C [Suspect]
     Dosage: 2 DF, BID
  2. FIORINAL C [Suspect]
     Dosage: 3 DF, QD
  3. AMLODIPINE [Concomitant]
  4. CALCIUM + VITAMIN D [Concomitant]
  5. ATIVAN [Concomitant]
  6. COLACE [Concomitant]
  7. COVERSYL//PERINDOPRIL ARGININE [Concomitant]
  8. METFORMIN [Concomitant]
  9. ROSUVASTATIN [Concomitant]

REACTIONS (2)
  - Gastric ulcer haemorrhage [Recovered/Resolved]
  - Haemoglobin decreased [Recovered/Resolved]
